FAERS Safety Report 18385120 (Version 8)
Quarter: 2022Q3

REPORT INFORMATION
  Report Type: Report from Study
  Country: IL (occurrence: None)
  Receive Date: 20201014
  Receipt Date: 20220922
  Transmission Date: 20221027
  Serious: Yes (Hospitalization)
  Sender: FDA-Public Use
  Company Number: IL-ROCHE-2683149

PATIENT
  Age: 62 Year
  Sex: Male
  Weight: 63 kg

DRUGS (45)
  1. ATEZOLIZUMAB [Suspect]
     Active Substance: ATEZOLIZUMAB
     Indication: Lung neoplasm malignant
     Dosage: DATE OF MOST RECENT  DOSE ATEZOLIZUMAB PRIOR TO AE/SAE ONSET: 22/APR/2020
     Route: 041
     Dates: start: 20200123
  2. ATEZOLIZUMAB [Suspect]
     Active Substance: ATEZOLIZUMAB
     Indication: Lung neoplasm malignant
     Dosage: DATE OF MOST RECENT DOSE OPEN LABEL ATEZOLIZUMAB PRIOR TO AE/SAE ONSET WAS 1200 MG ON 27/AUG/2020
     Route: 041
     Dates: start: 20200716
  3. PACLITAXEL [Suspect]
     Active Substance: PACLITAXEL
     Indication: Lung neoplasm malignant
     Dosage: DATE OF MOST RECENT DOSE ATEZOLIZUMAB PRIOR TO AE/SAE: 22/APR/2020?MOST RECENT DOSE OF NAB-PACLITAXE
     Route: 042
     Dates: start: 20200123
  4. CARBOPLATIN [Suspect]
     Active Substance: CARBOPLATIN
     Indication: Lung neoplasm malignant
     Dosage: DATE OF MOST RECENT DOSE (686 MG) OF CARBOPLATIN PRIOR TO SAE ONSET: 22/APR/2020?DOSE OF CARBOPLATIN
     Route: 042
     Dates: start: 20200123
  5. ADVIL [Concomitant]
     Active Substance: IBUPROFEN
     Indication: Arthralgia
     Dates: start: 20200129
  6. AKYNZEO [Concomitant]
     Indication: Premedication
     Dates: start: 20200123
  7. NEUPOGEN [Concomitant]
     Active Substance: FILGRASTIM
     Indication: Neutropenia
     Dates: start: 20200206
  8. PREDNISONE [Concomitant]
     Active Substance: PREDNISONE
     Indication: Amylase increased
     Route: 048
     Dates: start: 20200401
  9. EMEND [Concomitant]
     Active Substance: APREPITANT
     Indication: Premedication
     Dates: start: 20200123
  10. CRESTOR [Concomitant]
     Active Substance: ROSUVASTATIN CALCIUM
     Indication: Hyperlipidaemia
  11. CEFUROXIME [Concomitant]
     Active Substance: CEFUROXIME
     Indication: Cough
     Dates: start: 20200915, end: 20200919
  12. CEFUROXIME [Concomitant]
     Active Substance: CEFUROXIME
     Indication: Pyrexia
  13. ZATO [Concomitant]
     Indication: Pyrexia
     Dates: start: 20200915, end: 20200919
  14. ZATO [Concomitant]
     Indication: Cough
  15. METAMIZOLE [Concomitant]
     Active Substance: METAMIZOLE
     Dosage: PAIN CONTROL
     Dates: start: 20200920
  16. BISOPROLOL FUMARATE [Concomitant]
     Active Substance: BISOPROLOL FUMARATE
     Dates: start: 20200920, end: 20200925
  17. FLAGYL [Concomitant]
     Active Substance: METRONIDAZOLE\METRONIDAZOLE HYDROCHLORIDE
     Indication: Infection
     Dates: start: 20200920, end: 20200929
  18. TRAMADOL [Concomitant]
     Active Substance: TRAMADOL
     Dates: start: 20200920, end: 20200922
  19. TRAMADOL [Concomitant]
     Active Substance: TRAMADOL
     Dates: start: 20201010
  20. TRAMADOL [Concomitant]
     Active Substance: TRAMADOL
     Dates: start: 20200920, end: 20200922
  21. TRAMADOL [Concomitant]
     Active Substance: TRAMADOL
     Dates: start: 20200929, end: 20200929
  22. TRAMADOL [Concomitant]
     Active Substance: TRAMADOL
     Dates: start: 20201014
  23. BROTIZOLAM [Concomitant]
     Active Substance: BROTIZOLAM
     Indication: Insomnia
     Dates: start: 20200920, end: 20201012
  24. BROTIZOLAM [Concomitant]
     Active Substance: BROTIZOLAM
     Dates: start: 20201122
  25. ENOXAPARIN SODIUM [Concomitant]
     Active Substance: ENOXAPARIN SODIUM
     Indication: Prophylaxis
     Dates: start: 20200921, end: 20200924
  26. CODEINE PHOSPHATE [Concomitant]
     Active Substance: CODEINE PHOSPHATE
     Indication: Cough
     Dates: start: 20200922, end: 20201001
  27. LIDOCAINE [Concomitant]
     Active Substance: LIDOCAINE
     Indication: Anaesthesia
     Dates: start: 20200922, end: 20201001
  28. LIDOCAINE [Concomitant]
     Active Substance: LIDOCAINE
     Dates: start: 20201125, end: 20201126
  29. DIPYRONE [Concomitant]
     Active Substance: DIPYRONE
     Dates: start: 20200929, end: 20200929
  30. GARAMYCIN [Concomitant]
     Active Substance: GENTAMICIN SULFATE
     Indication: Infection
     Dates: start: 20200930, end: 20200930
  31. GARAMYCIN [Concomitant]
     Active Substance: GENTAMICIN SULFATE
     Dates: start: 20201012, end: 20201013
  32. ZALDIAR [Concomitant]
     Active Substance: ACETAMINOPHEN\TRAMADOL HYDROCHLORIDE
     Dates: start: 20200930, end: 20201009
  33. ZALDIAR [Concomitant]
     Active Substance: ACETAMINOPHEN\TRAMADOL HYDROCHLORIDE
     Dates: start: 20201011, end: 20201013
  34. CIPROFLOXACIN [Concomitant]
     Active Substance: CIPROFLOXACIN
     Indication: Infection
     Dates: start: 20201010
  35. ASPIRIN [Concomitant]
     Active Substance: ASPIRIN
     Indication: Prophylaxis
     Dates: start: 20201011
  36. ETODOLAC [Concomitant]
     Active Substance: ETODOLAC
     Dates: start: 20201011, end: 20201013
  37. AMPICILLIN [Concomitant]
     Active Substance: AMPICILLIN
     Indication: Infection
     Dates: start: 20201013, end: 20201014
  38. NOCTURNO [Concomitant]
     Indication: Insomnia
     Dates: start: 20201013
  39. FOLEX [Concomitant]
     Indication: Anaemia
     Dates: start: 20201013
  40. AMOXICILLIN [Concomitant]
     Active Substance: AMOXICILLIN
     Indication: Infection
     Dates: start: 20201014
  41. ROCEPHIN [Concomitant]
     Active Substance: CEFTRIAXONE SODIUM
     Indication: Infection
     Dates: start: 20200920, end: 20200929
  42. ADVIL [Concomitant]
     Active Substance: IBUPROFEN
     Indication: Arthralgia
     Dates: start: 20200129
  43. LEVOTHYROXINE [Concomitant]
     Active Substance: LEVOTHYROXINE
     Indication: Hyperthyroidism
     Dates: start: 20201123
  44. PFIZER-BIONTECH COVID-19 VACCINE [Concomitant]
     Active Substance: TOZINAMERAN
     Dates: start: 20201224, end: 20201224
  45. PFIZER-BIONTECH COVID-19 VACCINE [Concomitant]
     Active Substance: TOZINAMERAN
     Dates: start: 20210113, end: 20210113

REACTIONS (2)
  - Empyema [Not Recovered/Not Resolved]
  - Fistula [Not Recovered/Not Resolved]

NARRATIVE: CASE EVENT DATE: 20200919
